FAERS Safety Report 6934092-2 (Version None)
Quarter: 2010Q3

REPORT INFORMATION
  Report Type: 
  Country: None (occurrence: None)
  Receive Date: 20100820
  Receipt Date: 20100809
  Transmission Date: 20110219
  Serious: Yes (Other)
  Sender: FDA-Public Use
  Company Number: US-JNJCH-2010018455

PATIENT
  Sex: Female

DRUGS (1)
  1. FRESHBURST LISTERINE MOUTHWASH [Suspect]
     Indication: PRODUCT USED FOR UNKNOWN INDICATION
     Dosage: TEXT:^NORMAL AMOUNT^ TWICE DAILY
     Route: 048
     Dates: start: 20100725, end: 20100728

REACTIONS (4)
  - APPLICATION SITE BURN [None]
  - LIP SWELLING [None]
  - ORAL PAIN [None]
  - PRODUCT QUALITY ISSUE [None]
